FAERS Safety Report 21771877 (Version 2)
Quarter: 2023Q1

REPORT INFORMATION
  Report Type: Spontaneous
  Country: US (occurrence: US)
  Receive Date: 20221223
  Receipt Date: 20230112
  Transmission Date: 20230417
  Serious: No
  Sender: FDA-Public Use
  Company Number: US-SANOFI-01412561

PATIENT
  Age: 61 Year
  Sex: Male

DRUGS (1)
  1. LANTUS [Suspect]
     Active Substance: INSULIN GLARGINE
     Dosage: 20 IU, TID

REACTIONS (4)
  - Blood glucose increased [Unknown]
  - Device issue [Unknown]
  - Agitation [Unknown]
  - Inappropriate schedule of product administration [Unknown]
